FAERS Safety Report 19015056 (Version 1)
Quarter: 2021Q1

REPORT INFORMATION
  Report Type: Spontaneous
  Country: US (occurrence: US)
  Receive Date: 20210317
  Receipt Date: 20210317
  Transmission Date: 20210420
  Serious: No
  Sender: FDA-Public Use
  Company Number: US-ASTRAZENECA-2021A128309

PATIENT
  Sex: Male
  Weight: 81.6 kg

DRUGS (1)
  1. ESOMEPRAZOLE MAGNESIUM. [Suspect]
     Active Substance: ESOMEPRAZOLE MAGNESIUM
     Indication: OESOPHAGEAL SPASM
     Dosage: 40.0MG UNKNOWN
     Route: 048

REACTIONS (3)
  - Bone pain [Unknown]
  - Product use issue [Unknown]
  - Drug ineffective [Unknown]
